FAERS Safety Report 13111342 (Version 1)
Quarter: 2017Q1

REPORT INFORMATION
  Report Type: Spontaneous
  Country: GB (occurrence: GB)
  Receive Date: 20170112
  Receipt Date: 20170112
  Transmission Date: 20170428
  Serious: Yes (Hospitalization)
  Sender: FDA-Public Use
  Company Number: GB-ABBVIE-17P-167-1837995-00

PATIENT
  Age: 29 Year
  Sex: Female

DRUGS (1)
  1. SODIUM VALPROATE [Suspect]
     Active Substance: VALPROATE SODIUM
     Indication: BIPOLAR DISORDER
     Route: 065

REACTIONS (10)
  - Muscular weakness [Unknown]
  - Milia [Unknown]
  - Back pain [Unknown]
  - Porphyria acute [Unknown]
  - Anxiety [Unknown]
  - Vomiting [Unknown]
  - Mood swings [Unknown]
  - Abdominal pain [Unknown]
  - Hyponatraemia [Unknown]
  - Blister [Unknown]
